FAERS Safety Report 9012761 (Version 2)
Quarter: 2013Q2

REPORT INFORMATION
  Report Type: Spontaneous
  Country: RU (occurrence: RU)
  Receive Date: 20130114
  Receipt Date: 20130516
  Transmission Date: 20140414
  Serious: Yes (Other)
  Sender: FDA-Public Use
  Company Number: RU-ROCHE-1178808

PATIENT
  Age: 56 Year
  Sex: Female

DRUGS (3)
  1. BONVIVA [Suspect]
     Indication: OSTEOPOROSIS POSTMENOPAUSAL
     Route: 042
  2. CALCIUM CARBONATE [Concomitant]
     Route: 065
  3. VITAMIN D3 [Concomitant]
     Route: 065

REACTIONS (1)
  - Fracture [Unknown]
